FAERS Safety Report 25583660 (Version 1)
Quarter: 2025Q3

REPORT INFORMATION
  Report Type: Spontaneous
  Country: US (occurrence: US)
  Receive Date: 20250721
  Receipt Date: 20250721
  Transmission Date: 20251020
  Serious: No
  Sender: SANOFI AVENTIS
  Company Number: US-SA-2025SA204943

PATIENT
  Sex: Female
  Weight: 92.5 kg

DRUGS (7)
  1. DUPIXENT [Suspect]
     Active Substance: DUPILUMAB
     Indication: Illness
     Dosage: 300 MG, Q4W
     Route: 058
  2. BIOTIN [Concomitant]
     Active Substance: BIOTIN
  3. FAMOTIDINE [Concomitant]
     Active Substance: FAMOTIDINE
  4. MOUNJARO [Concomitant]
     Active Substance: TIRZEPATIDE
  5. AMLODIPINE + ATORVASTATIN [Concomitant]
  6. CYCLOBENZAPRINE HYDROCHLORIDE [Concomitant]
     Active Substance: CYCLOBENZAPRINE HYDROCHLORIDE
  7. MONTELUKAST SODIUM [Concomitant]
     Active Substance: MONTELUKAST SODIUM

REACTIONS (2)
  - Rebound effect [Unknown]
  - Inappropriate schedule of product administration [Unknown]
